FAERS Safety Report 4745778-2 (Version None)
Quarter: 2005Q3

REPORT INFORMATION
  Report Type: 
  Country: None (occurrence: None)
  Receive Date: 20050816
  Receipt Date: 20040830
  Transmission Date: 20060218
  Serious: No
  Sender: FDA-Public Use
  Company Number: US-BRISTOL-MYERS SQUIBB COMPANY-12690525

PATIENT
  Age: 43 Year
  Sex: Female
  Weight: 79 kg

DRUGS (3)
  1. LAC-HYDRIN CREAM [Suspect]
     Dates: start: 20040829, end: 20040829
  2. LEVOXYL [Concomitant]
  3. CONTRACEPTIVE [Concomitant]
     Route: 048

REACTIONS (2)
  - ACCIDENTAL EXPOSURE [None]
  - DYSGEUSIA [None]
